FAERS Safety Report 5423044-X (Version None)
Quarter: 2007Q3

REPORT INFORMATION
  Report Type: 
  Country: None (occurrence: None)
  Receive Date: 20070822
  Receipt Date: 20070810
  Transmission Date: 20080115
  Serious: Yes (Other)
  Sender: FDA-Public Use
  Company Number: US-PFIZER INC-2007067966

PATIENT
  Sex: Female
  Weight: 58.181 kg

DRUGS (3)
  1. NEURONTIN [Suspect]
     Indication: TRIGEMINAL NEURALGIA
  2. ASCORBIC ACID [Concomitant]
  3. ASPIRIN [Concomitant]

REACTIONS (7)
  - ARTHRALGIA [None]
  - DRUG INEFFECTIVE [None]
  - FATIGUE [None]
  - MUSCULAR WEAKNESS [None]
  - NEOPLASM [None]
  - RENAL PAIN [None]
  - SOMNOLENCE [None]
